FAERS Safety Report 6421083-3 (Version None)
Quarter: 2009Q4

REPORT INFORMATION
  Report Type: 
  Country: None (occurrence: None)
  Receive Date: 20091030
  Receipt Date: 20091019
  Transmission Date: 20100525
  Serious: Yes (Death, Hospitalization)
  Sender: FDA-Public Use
  Company Number: CA-JNJFOC-20090801554

PATIENT
  Sex: Female
  Weight: 58 kg

DRUGS (48)
  1. GOLIMUMAB [Suspect]
     Route: 058
     Dates: start: 20070124, end: 20090706
  2. GOLIMUMAB [Suspect]
     Route: 058
     Dates: start: 20070124, end: 20090706
  3. GOLIMUMAB [Suspect]
     Route: 058
     Dates: start: 20070124, end: 20090706
  4. GOLIMUMAB [Suspect]
     Route: 058
     Dates: start: 20070124, end: 20090706
  5. GOLIMUMAB [Suspect]
     Route: 058
     Dates: start: 20070124, end: 20090706
  6. GOLIMUMAB [Suspect]
     Route: 058
     Dates: start: 20070124, end: 20090706
  7. GOLIMUMAB [Suspect]
     Route: 058
     Dates: start: 20070124, end: 20090706
  8. GOLIMUMAB [Suspect]
     Route: 058
     Dates: start: 20070124, end: 20090706
  9. GOLIMUMAB [Suspect]
     Route: 058
     Dates: start: 20070124, end: 20090706
  10. GOLIMUMAB [Suspect]
     Route: 058
     Dates: start: 20070124, end: 20090706
  11. GOLIMUMAB [Suspect]
     Route: 058
     Dates: start: 20070124, end: 20090706
  12. GOLIMUMAB [Suspect]
     Route: 058
     Dates: start: 20070124, end: 20090706
  13. GOLIMUMAB [Suspect]
     Route: 058
     Dates: start: 20070124, end: 20090706
  14. GOLIMUMAB [Suspect]
     Route: 058
     Dates: start: 20070124, end: 20090706
  15. GOLIMUMAB [Suspect]
     Route: 058
     Dates: start: 20070124, end: 20090706
  16. GOLIMUMAB [Suspect]
     Route: 058
     Dates: start: 20070124, end: 20090706
  17. GOLIMUMAB [Suspect]
     Route: 058
     Dates: start: 20070124, end: 20090706
  18. GOLIMUMAB [Suspect]
     Route: 058
     Dates: start: 20070124, end: 20090706
  19. GOLIMUMAB [Suspect]
     Route: 058
     Dates: start: 20070124, end: 20090706
  20. GOLIMUMAB [Suspect]
     Route: 058
     Dates: start: 20070124, end: 20090706
  21. GOLIMUMAB [Suspect]
     Route: 058
     Dates: start: 20070124, end: 20090706
  22. GOLIMUMAB [Suspect]
     Route: 058
     Dates: start: 20070124, end: 20090706
  23. GOLIMUMAB [Suspect]
     Route: 058
     Dates: start: 20070124, end: 20090706
  24. GOLIMUMAB [Suspect]
     Route: 058
     Dates: start: 20070124, end: 20090706
  25. GOLIMUMAB [Suspect]
     Route: 058
     Dates: start: 20070124, end: 20090706
  26. GOLIMUMAB [Suspect]
     Route: 058
     Dates: start: 20070124, end: 20090706
  27. GOLIMUMAB [Suspect]
     Route: 058
     Dates: start: 20070124, end: 20090706
  28. GOLIMUMAB [Suspect]
     Route: 058
     Dates: start: 20070124, end: 20090706
  29. GOLIMUMAB [Suspect]
     Route: 058
     Dates: start: 20070124, end: 20090706
  30. GOLIMUMAB [Suspect]
     Route: 058
     Dates: start: 20070124, end: 20090706
  31. GOLIMUMAB [Suspect]
     Indication: RHEUMATOID ARTHRITIS
     Route: 058
     Dates: start: 20070124, end: 20090706
  32. METHOTREXATE [Suspect]
     Indication: RHEUMATOID ARTHRITIS
     Route: 058
  33. TYLENOL (CAPLET) [Concomitant]
     Indication: RHEUMATOID ARTHRITIS
     Route: 048
  34. PLAQUENIL [Concomitant]
     Indication: RHEUMATOID ARTHRITIS
     Route: 048
  35. FOLIC ACID [Concomitant]
     Indication: RHEUMATOID ARTHRITIS
     Route: 048
  36. ROCALTROL [Concomitant]
     Indication: NUTRITIONAL SUPPORT
     Route: 048
  37. ELTROXIN [Concomitant]
     Indication: AUTOIMMUNE THYROIDITIS
     Route: 048
  38. METOPROLOL [Concomitant]
     Indication: CORONARY ARTERY DISEASE
     Route: 048
  39. AVALIDE [Concomitant]
     Indication: HYPERTENSION
     Route: 048
  40. CELEXA [Concomitant]
     Indication: DEPRESSION
     Route: 048
  41. LIPITOR [Concomitant]
     Indication: HYPERLIPIDAEMIA
     Route: 048
  42. ACETYLSALICYLIC ACID [Concomitant]
     Indication: CORONARY ARTERY DISEASE
     Route: 048
  43. VITAMIN B-12 [Concomitant]
     Indication: PROPHYLAXIS
     Route: 058
  44. RABEPRAZOLE [Concomitant]
     Indication: GASTROOESOPHAGEAL REFLUX DISEASE
     Route: 048
  45. MIACALCIN [Concomitant]
     Indication: SPINAL COMPRESSION FRACTURE
  46. PREDNISONE [Concomitant]
     Route: 048
  47. PREDNISONE [Concomitant]
     Indication: RHEUMATOID ARTHRITIS
     Route: 048
  48. OXYCODONE HCL AND ACETAMINOPHEN [Concomitant]
     Indication: RHEUMATOID ARTHRITIS
     Route: 048

REACTIONS (1)
  - DIFFUSE LARGE B-CELL LYMPHOMA [None]
